FAERS Safety Report 10329108 (Version 2)
Quarter: 2014Q3

REPORT INFORMATION
  Report Type: Report from Study
  Country: DE (occurrence: DE)
  Receive Date: 20140721
  Receipt Date: 20140730
  Transmission Date: 20150326
  Serious: Yes (Hospitalization)
  Sender: FDA-Public Use
  Company Number: DE-PFIZER INC-2014192458

PATIENT
  Age: 45 Year
  Sex: Male

DRUGS (1)
  1. TOFACITINIB CITRATE [Suspect]
     Active Substance: TOFACITINIB CITRATE
     Indication: PSORIASIS
     Dosage: 2 X 10 MG, UNK
     Route: 048
     Dates: start: 20120614

REACTIONS (1)
  - Clavicle fracture [Recovered/Resolved with Sequelae]

NARRATIVE: CASE EVENT DATE: 20140707
